FAERS Safety Report 6901674-3 (Version None)
Quarter: 2010Q3

REPORT INFORMATION
  Report Type: 
  Country: None (occurrence: None)
  Receive Date: 20100802
  Receipt Date: 20100802
  Transmission Date: 20110219
  Serious: Yes (Other)
  Sender: FDA-Public Use
  Company Number: None

PATIENT
  Age: 63 Year
  Sex: Female
  Weight: 91.6266 kg

DRUGS (1)
  1. EVAMIST [Suspect]
     Indication: HOT FLUSH
     Dosage: 2 SPRAYS ONCE A DAY TRANSDERMAL
     Route: 062
     Dates: start: 20091115, end: 20100715

REACTIONS (2)
  - APPLICATION SITE PRURITUS [None]
  - APPLICATION SITE RASH [None]
